FAERS Safety Report 16109727 (Version 4)
Quarter: 2019Q2

REPORT INFORMATION
  Report Type: Spontaneous
  Country: PT (occurrence: PT)
  Receive Date: 20190325
  Receipt Date: 20190411
  Transmission Date: 20190711
  Serious: Yes (Life-Threatening, Hospitalization, Other)
  Sender: FDA-Public Use
  Company Number: PHHY2019PT065382

PATIENT
  Age: 38 Year
  Sex: Female

DRUGS (13)
  1. ALPRAZOLAM. [Suspect]
     Active Substance: ALPRAZOLAM
     Dosage: 40 MG, QD
     Route: 065
  2. ACETAMINOPHEN. [Suspect]
     Active Substance: ACETAMINOPHEN
     Indication: INTENTIONAL OVERDOSE
     Dosage: 15 G, QD
     Route: 065
  3. QUETIAPINE. [Suspect]
     Active Substance: QUETIAPINE
     Dosage: 800 MG, QD
     Route: 065
  4. CODEINE [Suspect]
     Active Substance: CODEINE
     Indication: INTENTIONAL OVERDOSE
  5. QUETIAPINE. [Suspect]
     Active Substance: QUETIAPINE
     Indication: INTENTIONAL OVERDOSE
     Dosage: 9 G, QD
     Route: 065
  6. ALPRAZOLAM. [Suspect]
     Active Substance: ALPRAZOLAM
     Indication: INTENTIONAL OVERDOSE
     Dosage: 9 G, UNK
     Route: 065
  7. CODEINE [Suspect]
     Active Substance: CODEINE
     Indication: INTENTIONAL OVERDOSE
  8. CODEINE [Suspect]
     Active Substance: CODEINE
     Indication: INTENTIONAL OVERDOSE
     Dosage: 900 MG, QD
     Route: 065
  9. ALPRAZOLAM. [Suspect]
     Active Substance: ALPRAZOLAM
     Dosage: 16 MG, QD
     Route: 065
  10. CODEINE [Suspect]
     Active Substance: CODEINE
     Indication: PRODUCT USED FOR UNKNOWN INDICATION
  11. VENLAFAXINE [Suspect]
     Active Substance: VENLAFAXINE HYDROCHLORIDE
     Indication: INTENTIONAL OVERDOSE
     Dosage: 3 G, QD
     Route: 065
  12. AMOXICILLIN + CLAVULANATE POTASSIUM [Suspect]
     Active Substance: AMOXICILLIN\CLAVULANATE POTASSIUM
     Indication: PNEUMONIA
     Route: 065
  13. CODEINE [Suspect]
     Active Substance: CODEINE
     Indication: INTENTIONAL OVERDOSE

REACTIONS (26)
  - Intentional overdose [Recovered/Resolved]
  - Distributive shock [Recovered/Resolved]
  - Cholestatic liver injury [Recovered/Resolved]
  - Off label use [Unknown]
  - Respiratory failure [Unknown]
  - Coma [Recovered/Resolved]
  - Cholestasis [Recovering/Resolving]
  - Neurological symptom [Recovered/Resolved]
  - Pneumonia [Unknown]
  - Agitation [Unknown]
  - Delirium [Unknown]
  - Substance abuse [Unknown]
  - Respiratory disorder [Recovered/Resolved]
  - Vocal cord paralysis [Unknown]
  - Drug abuse [Unknown]
  - Hydronephrosis [Unknown]
  - Renal papillary necrosis [Recovered/Resolved]
  - Anuria [Recovering/Resolving]
  - Nervous system disorder [Unknown]
  - Hepatic function abnormal [Recovered/Resolved]
  - Multiple organ dysfunction syndrome [Recovered/Resolved]
  - Acute kidney injury [Recovered/Resolved]
  - Liver injury [Recovered/Resolved]
  - Cardiac dysfunction [Recovered/Resolved]
  - Cardiovascular disorder [Recovered/Resolved]
  - Overdose [Recovered/Resolved]
